FAERS Safety Report 12484486 (Version 4)
Quarter: 2018Q1

REPORT INFORMATION
  Report Type: Report from Study
  Country: BR (occurrence: BR)
  Receive Date: 20160621
  Receipt Date: 20180315
  Transmission Date: 20180508
  Serious: Yes (Hospitalization, Other)
  Sender: FDA-Public Use
  Company Number: PHHY2016BR084291

PATIENT
  Age: 61 Year
  Sex: Female
  Weight: 99 kg

DRUGS (15)
  1. PRELONE [Suspect]
     Active Substance: PREDNISOLONE
     Indication: PRODUCT USED FOR UNKNOWN INDICATION
     Route: 065
  2. MONTELAIR [Concomitant]
     Active Substance: MONTELUKAST SODIUM
     Indication: ASTHMA
     Dosage: 1 DF, QD
     Route: 048
     Dates: start: 2007
  3. SPIRIVA [Concomitant]
     Active Substance: TIOTROPIUM BROMIDE MONOHYDRATE
     Indication: PRODUCT USED FOR UNKNOWN INDICATION
     Route: 065
  4. SERTRALINE [Concomitant]
     Active Substance: SERTRALINE HYDROCHLORIDE
     Indication: DEPRESSION
     Dosage: 1 DF, QD
     Route: 048
     Dates: start: 2004
  5. BRASART [Suspect]
     Active Substance: VALSARTAN
     Indication: BLOOD PRESSURE ABNORMAL
     Dosage: 160 MG, PRN (2 TABLETS)
     Route: 065
  6. FOSTAIR [Concomitant]
     Active Substance: BECLOMETHASONE\FORMOTEROL
     Indication: ASTHMA
     Dosage: 4 DF, BID
     Route: 055
     Dates: start: 2014
  7. RIVOTRIL [Concomitant]
     Active Substance: CLONAZEPAM
     Indication: INSOMNIA
     Dosage: 10-15 DROPS, QD
     Route: 048
  8. XOLAIR [Suspect]
     Active Substance: OMALIZUMAB
     Indication: ASTHMA
     Dosage: 2 DF (300 MG), QMO
     Route: 058
     Dates: start: 201702
  9. XOLAIR [Suspect]
     Active Substance: OMALIZUMAB
     Indication: RESPIRATORY DISORDER
  10. HIXIZINE [Concomitant]
     Active Substance: HYDROXYZINE HYDROCHLORIDE
     Indication: HYPERSENSITIVITY
     Dosage: 1 DF, QD
     Route: 048
  11. HIXIZINE [Concomitant]
     Active Substance: HYDROXYZINE HYDROCHLORIDE
     Indication: SINUSITIS
  12. VENALOT                            /00843801/ [Concomitant]
     Active Substance: COUMARIN\TROXERUTIN
     Indication: CARDIOVASCULAR DISORDER
     Dosage: 2 DF, QD
     Route: 048
  13. XOLAIR [Suspect]
     Active Substance: OMALIZUMAB
     Indication: BRONCHITIS
     Dosage: 2 DF (300 MG), QMO
     Route: 058
     Dates: start: 20180221
  14. DIOVAN [Suspect]
     Active Substance: VALSARTAN
     Indication: HYPERTENSION
     Dosage: 320 MG, QD
     Route: 048
  15. HIXIZINE [Concomitant]
     Active Substance: HYDROXYZINE HYDROCHLORIDE
     Indication: RHINITIS

REACTIONS (34)
  - Sialoadenitis [Unknown]
  - Atrophic vulvovaginitis [Not Recovered/Not Resolved]
  - Dyspnoea [Recovered/Resolved]
  - Urinary incontinence [Unknown]
  - Spinal pain [Recovering/Resolving]
  - Somnolence [Not Recovered/Not Resolved]
  - Pulmonary mass [Not Recovered/Not Resolved]
  - Parosmia [Unknown]
  - Memory impairment [Unknown]
  - Blood pressure increased [Unknown]
  - Cough [Not Recovered/Not Resolved]
  - Secretion discharge [Not Recovered/Not Resolved]
  - Blister [Not Recovered/Not Resolved]
  - Erythema [Not Recovered/Not Resolved]
  - Asthenia [Unknown]
  - Wheezing [Unknown]
  - Insomnia [Unknown]
  - Pruritus [Not Recovered/Not Resolved]
  - Malaise [Unknown]
  - Exostosis [Unknown]
  - Arthritis [Unknown]
  - Cataract [Not Recovered/Not Resolved]
  - Respiratory failure [Unknown]
  - Salivary gland enlargement [Unknown]
  - Thyroid cancer [Not Recovered/Not Resolved]
  - Cyanosis [Unknown]
  - Drug intolerance [Unknown]
  - Asthma [Not Recovered/Not Resolved]
  - Swollen tongue [Unknown]
  - Lung disorder [Unknown]
  - Scoliosis [Unknown]
  - Body height decreased [Unknown]
  - Osteoarthritis [Unknown]
  - Fatigue [Unknown]

NARRATIVE: CASE EVENT DATE: 2009
